FAERS Safety Report 22178569 (Version 6)
Quarter: 2023Q4

REPORT INFORMATION
  Report Type: Spontaneous
  Country: JP (occurrence: JP)
  Receive Date: 20230405
  Receipt Date: 20231221
  Transmission Date: 20240109
  Serious: Yes (Life-Threatening, Hospitalization, Disabling)
  Sender: FDA-Public Use
  Company Number: JP-NEUROCRINE BIOSCIENCES INC.-2023NBI02836

PATIENT
  Age: 43 Year
  Sex: Male

DRUGS (11)
  1. VALBENAZINE [Suspect]
     Active Substance: VALBENAZINE
     Indication: Tardive dyskinesia
     Dosage: 40 MILLIGRAM, QD
     Route: 048
     Dates: start: 20230126, end: 20230208
  2. VALBENAZINE [Suspect]
     Active Substance: VALBENAZINE
     Dosage: 80 MILLIGRAM, QD
     Route: 048
     Dates: start: 20230209, end: 20230305
  3. QUETIAPINE FUMARATE [Suspect]
     Active Substance: QUETIAPINE FUMARATE
     Indication: Insomnia
     Dosage: 300 MILLIGRAM,QD
     Route: 048
     Dates: end: 20230305
  4. REXULTI [Suspect]
     Active Substance: BREXPIPRAZOLE
     Indication: Insomnia
     Dosage: 2 MILLIGRAM, QD
     Route: 048
     Dates: end: 20230305
  5. ASENAPINE MALEATE [Suspect]
     Active Substance: ASENAPINE MALEATE
     Indication: Insomnia
     Dosage: 20 MILLIGRAM, QD
     Route: 048
     Dates: end: 20230305
  6. ENORAS [Concomitant]
     Indication: Nutritional supplementation
     Dosage: UNK
     Route: 065
     Dates: end: 20230305
  7. ENORAS [Concomitant]
     Indication: Decreased appetite
  8. DAYVIGO [Concomitant]
     Active Substance: LEMBOREXANT
     Indication: Insomnia
     Dosage: UNK
     Route: 065
     Dates: end: 20230305
  9. FLUNITRAZEPAM [Concomitant]
     Active Substance: FLUNITRAZEPAM
     Indication: Insomnia
     Dosage: UNK
     Route: 065
     Dates: end: 20230305
  10. RUPAFIN [Concomitant]
     Active Substance: RUPATADINE FUMARATE
     Indication: Insomnia
     Dosage: UNK
     Route: 065
     Dates: end: 20230305
  11. HERBALS [Concomitant]
     Active Substance: HERBALS
     Indication: Insomnia
     Dosage: UNK
     Route: 065
     Dates: end: 20230305

REACTIONS (5)
  - Rhabdomyolysis [Unknown]
  - Septic shock [Unknown]
  - Haematemesis [Unknown]
  - Neuroleptic malignant syndrome [Unknown]
  - Aspiration [Unknown]

NARRATIVE: CASE EVENT DATE: 20230304
